FAERS Safety Report 4784562-0 (Version None)
Quarter: 2005Q3

REPORT INFORMATION
  Report Type: 
  Country: None (occurrence: None)
  Receive Date: 20050928
  Receipt Date: 20050919
  Transmission Date: 20060218
  Serious: Yes (Death, Life-Threatening, Hospitalization, Disabling, Other)
  Sender: FDA-Public Use
  Company Number: 2005-09-0775

PATIENT
  Age: 54 Year
  Sex: Male
  Weight: 116.5744 kg

DRUGS (5)
  1. PEG-INTRON [Suspect]
     Indication: HEPATITIS C
     Dosage: 150 MCG QWK SUBCUTANEOUS
     Route: 058
     Dates: start: 20050819, end: 20050902
  2. RIBAVIRIN [Suspect]
     Indication: HEPATITIS C
     Dosage: 1400 MG QD ORAL
     Route: 048
     Dates: start: 20050819, end: 20050902
  3. LASIX [Concomitant]
  4. NADOLOL [Concomitant]
  5. SPIRONOLACTONE [Concomitant]

REACTIONS (11)
  - CARDIAC ARREST [None]
  - CHROMATURIA [None]
  - DEHYDRATION [None]
  - HEPATIC CIRRHOSIS [None]
  - HYPOTENSION [None]
  - INFLUENZA LIKE ILLNESS [None]
  - MYOCARDIAL INFARCTION [None]
  - ORAL INTAKE REDUCED [None]
  - PNEUMONIA [None]
  - RENAL FAILURE [None]
  - SEPSIS [None]
